FAERS Safety Report 22265351 (Version 1)
Quarter: 2023Q2

REPORT INFORMATION
  Report Type: Spontaneous
  Country: US (occurrence: None)
  Receive Date: 20230426
  Receipt Date: 20230426
  Transmission Date: 20230722
  Serious: No
  Sender: FDA-Public Use
  Company Number: None

PATIENT
  Age: 73 Year
  Sex: Male
  Weight: 90.72 kg

DRUGS (23)
  1. WELIREG [Suspect]
     Active Substance: BELZUTIFAN
     Indication: Renal cancer
     Dosage: FREQUENCY : DAILY;?
     Route: 048
     Dates: start: 20220628
  2. ALLOPURINOL [Concomitant]
     Active Substance: ALLOPURINOL
  3. AMLODIPINE [Concomitant]
     Active Substance: AMLODIPINE BESYLATE
  4. BUDESONIDE [Concomitant]
     Active Substance: BUDESONIDE
  5. COLCHICINE [Concomitant]
     Active Substance: COLCHICINE
  6. DEXAMETHASONE [Concomitant]
     Active Substance: DEXAMETHASONE
  7. DEXILANT [Concomitant]
     Active Substance: DEXLANSOPRAZOLE
  8. DEXTROSE [Concomitant]
     Active Substance: DEXTROSE\DEXTROSE MONOHYDRATE
  9. ATROPINE\DIPHENOXYLATE [Concomitant]
     Active Substance: ATROPINE\DIPHENOXYLATE
  10. ESZOPICLONE [Concomitant]
     Active Substance: ESZOPICLONE
  11. FLUTICASONE-SALMETROL INHALATION [Concomitant]
  12. GRAMIFIBROZIL [Concomitant]
  13. GRANISETRON [Concomitant]
     Active Substance: GRANISETRON
  14. HYDROXYZINE [Concomitant]
     Active Substance: HYDROXYZINE HYDROCHLORIDE
  15. MAGNESIUM [Concomitant]
     Active Substance: MAGNESIUM
  16. MONTELUKAST [Concomitant]
     Active Substance: MONTELUKAST SODIUM
  17. NORCO OMEPRAZOLE [Concomitant]
  18. ONDANSETRON [Concomitant]
     Active Substance: ONDANSETRON
  19. OPDIVO [Concomitant]
     Active Substance: NIVOLUMAB
  20. POTASSIUM CHLORIDE [Concomitant]
     Active Substance: POTASSIUM CHLORIDE
  21. PROAIR HFA [Concomitant]
     Active Substance: ALBUTEROL SULFATE
  22. TRAMADOL [Concomitant]
     Active Substance: TRAMADOL
  23. ZOLPIDEM TARTRATE [Concomitant]
     Active Substance: ZOLPIDEM TARTRATE

REACTIONS (5)
  - Renal cancer [None]
  - Malignant neoplasm progression [None]
  - Fatigue [None]
  - Balance disorder [None]
  - Decreased appetite [None]
